FAERS Safety Report 6816739-4 (Version None)
Quarter: 2010Q3

REPORT INFORMATION
  Report Type: 
  Country: None (occurrence: None)
  Receive Date: 20100706
  Receipt Date: 20100622
  Transmission Date: 20110219
  Serious: Yes (Hospitalization, Other)
  Sender: FDA-Public Use
  Company Number: PHFR2010GB00776

PATIENT
  Sex: Male

DRUGS (1)
  1. CLOZARIL [Suspect]
     Indication: SCHIZOPHRENIA
     Dosage: 300 MG/DAY
     Route: 048
     Dates: start: 19961202

REACTIONS (5)
  - AGITATION [None]
  - MALAISE [None]
  - RESPIRATORY TRACT INFECTION [None]
  - SEDATION [None]
  - THERMAL BURN [None]
